FAERS Safety Report 11602661 (Version 1)
Quarter: 2015Q4

REPORT INFORMATION
  Report Type: Spontaneous
  Country: US (occurrence: US)
  Receive Date: 20151006
  Receipt Date: 20151006
  Transmission Date: 20160304
  Serious: No
  Sender: FDA-Public Use
  Company Number: US-AMGEN-USASP2015078089

PATIENT
  Age: 57 Year
  Sex: Female

DRUGS (16)
  1. PROLIA [Suspect]
     Active Substance: DENOSUMAB
     Indication: OSTEOPOROSIS
     Dosage: UNK, UNK
     Route: 065
     Dates: start: 201501
  2. MIRTAZAPINE A [Concomitant]
     Active Substance: MIRTAZAPINE
     Dosage: 30 MG, QD
  3. ATORVASTATIN [Concomitant]
     Active Substance: ATORVASTATIN
     Dosage: 20 MG, QD
  4. LIDOCAINE                          /00033402/ [Concomitant]
     Active Substance: LIDOCAINE
     Dosage: 5 %, AS NECESSARY
  5. PROPANOLOL                         /00030001/ [Concomitant]
     Active Substance: PROPRANOLOL HYDROCHLORIDE
     Dosage: 60 MG, QD
  6. CLONAZEPAM CEVALLOS [Concomitant]
     Dosage: 5 MG, BID
  7. CARAFATE [Concomitant]
     Active Substance: SUCRALFATE
     Dosage: ONE GRAM/10ML SUSPENSION
  8. VITAMIN B12 [Concomitant]
     Active Substance: CYANOCOBALAMIN
     Dosage: UNK UNK, Q3MO
  9. CALCIUM WITH VITAMIN D             /00944201/ [Concomitant]
     Active Substance: CALCIUM\VITAMIN D
  10. LEVOTHYROXINE                      /00068002/ [Concomitant]
     Dosage: 50 MCG 5 TIMES A WEEK AND THEN 1 AND HALF TABLET TWICE A WEEK
     Route: 048
  11. METHADONE [Concomitant]
     Active Substance: METHADONE HYDROCHLORIDE
     Indication: PAIN
     Dosage: 10 MG, 5 TIMES A DAY FOR PAIN
  12. FLONASE                            /00908302/ [Concomitant]
     Active Substance: MOMETASONE FUROATE
     Dosage: UNK UNK, BID
  13. PANTOPRAZOLE                       /01263204/ [Concomitant]
     Active Substance: PANTOPRAZOLE SODIUM
     Dosage: 40 MG, BID
  14. PROMETHAZINE                       /00033002/ [Concomitant]
     Dosage: 25 MG, TID
  15. LAMOTRIGINE A [Concomitant]
     Active Substance: LAMOTRIGINE
     Dosage: UNK
     Dates: start: 2005
  16. ASA [Concomitant]
     Active Substance: ASPIRIN
     Dosage: 81 MG, BID

REACTIONS (4)
  - Aphasia [Recovered/Resolved]
  - Depressed mood [Unknown]
  - Gait disturbance [Recovered/Resolved]
  - Dysarthria [Recovered/Resolved]

NARRATIVE: CASE EVENT DATE: 2015
